FAERS Safety Report 16282265 (Version 2)
Quarter: 2019Q2

REPORT INFORMATION
  Report Type: Report from Study
  Country: PL (occurrence: PL)
  Receive Date: 20190507
  Receipt Date: 20190513
  Transmission Date: 20190711
  Serious: Yes (Hospitalization)
  Sender: FDA-Public Use
  Company Number: PL-ROCHE-2311045

PATIENT
  Age: 77 Year
  Sex: Male
  Weight: 67 kg

DRUGS (2)
  1. BISOCARD [Concomitant]
     Active Substance: BISOPROLOL
     Indication: HYPERTENSION
     Route: 048
  2. ATEZOLIZUMAB. [Suspect]
     Active Substance: ATEZOLIZUMAB
     Indication: TRANSITIONAL CELL CARCINOMA
     Dosage: DATE OF MOST RECENT DOSE OF ATEZOLIZUMAB ON 10/NOV/2017 AT 13.50
     Route: 042
     Dates: start: 20161229

REACTIONS (1)
  - Intestinal obstruction [Not Recovered/Not Resolved]

NARRATIVE: CASE EVENT DATE: 20190403
